FAERS Safety Report 15661548 (Version 1)
Quarter: 2018Q4

REPORT INFORMATION
  Report Type: Spontaneous
  Country: JP (occurrence: JP)
  Receive Date: 20181127
  Receipt Date: 20181127
  Transmission Date: 20190205
  Serious: Yes (Other)
  Sender: FDA-Public Use
  Company Number: PHJP2018JP003791

PATIENT

DRUGS (3)
  1. RITALIN [Suspect]
     Active Substance: METHYLPHENIDATE HYDROCHLORIDE
     Indication: PRODUCT USED FOR UNKNOWN INDICATION
     Dosage: UNK
     Route: 048
  2. BETANAMIN [Concomitant]
     Active Substance: PEMOLINE
     Indication: PRODUCT USED FOR UNKNOWN INDICATION
     Dosage: UNK
     Route: 065
  3. HALCION [Concomitant]
     Active Substance: TRIAZOLAM
     Indication: PRODUCT USED FOR UNKNOWN INDICATION
     Dosage: UNK
     Route: 065

REACTIONS (16)
  - Drug dependence [Unknown]
  - Psychiatric symptom [Unknown]
  - Influenza [Unknown]
  - Bruxism [Unknown]
  - Asthenia [Unknown]
  - Irritability [Unknown]
  - Negative thoughts [Unknown]
  - Nightmare [Unknown]
  - Muscle tightness [Unknown]
  - Drug effect incomplete [Unknown]
  - Anxiety [Unknown]
  - Agitation [Unknown]
  - Hypopnoea [Unknown]
  - Emotional distress [Unknown]
  - Pyrexia [Unknown]
  - Apathy [Unknown]
